FAERS Safety Report 8891740 (Version 1)
Quarter: 2012Q4

REPORT INFORMATION
  Report Type: 
  Country: US (occurrence: US)
  Receive Date: 20121107
  Receipt Date: 20121107
  Transmission Date: 20130627
  Serious: No
  Sender: FDA-Public Use
  Company Number: US-AMGEN-USASP2011056500

PATIENT
  Age: 64 Year
  Sex: Female

DRUGS (6)
  1. ENBREL [Suspect]
     Dosage: 50 mg, qwk
     Route: 058
  2. PREDNISONE [Concomitant]
     Dosage: 1 mg, UNK
  3. SYNTHROID [Concomitant]
     Dosage: 25 mug, UNK
  4. CITALOPRAM [Concomitant]
     Dosage: 10 mg, UNK
  5. DICYCLOMINE                        /00068601/ [Concomitant]
     Dosage: 10 mg, UNK
  6. LANSOPRAZOLE [Concomitant]
     Dosage: 15 mg, UNK

REACTIONS (1)
  - Tremor [Not Recovered/Not Resolved]
